FAERS Safety Report 23328898 (Version 2)
Quarter: 2023Q4

REPORT INFORMATION
  Report Type: Spontaneous
  Country: US (occurrence: US)
  Receive Date: 20231222
  Receipt Date: 20231228
  Transmission Date: 20240110
  Serious: Yes (Other)
  Sender: FDA-Public Use
  Company Number: US-ABBVIE-5551783

PATIENT
  Age: 69 Year
  Sex: Female
  Weight: 54 kg

DRUGS (2)
  1. BYSTOLIC [Suspect]
     Active Substance: NEBIVOLOL HYDROCHLORIDE
     Indication: Myocardial infarction
     Dosage: FORM STRENGTH: 5 MILLIGRAM
     Route: 048
  2. BYSTOLIC [Suspect]
     Active Substance: NEBIVOLOL HYDROCHLORIDE
     Indication: Myocardial infarction
     Dosage: FORM STRENGTH: 5 MILLIGRAM
     Route: 048
     Dates: start: 2011

REACTIONS (8)
  - Atrioventricular block complete [Not Recovered/Not Resolved]
  - Dizziness [Not Recovered/Not Resolved]
  - Drug resistance [Unknown]
  - Wrong technique in product usage process [Not Recovered/Not Resolved]
  - Lactose intolerance [Unknown]
  - Dyspnoea [Not Recovered/Not Resolved]
  - Heart rate increased [Not Recovered/Not Resolved]
  - Stress [Not Recovered/Not Resolved]

NARRATIVE: CASE EVENT DATE: 20230501
